FAERS Safety Report 6982350-8 (Version None)
Quarter: 2010Q3

REPORT INFORMATION
  Report Type: 
  Country: None (occurrence: None)
  Receive Date: 20100909
  Receipt Date: 20100830
  Transmission Date: 20110219
  Serious: Yes (Other)
  Sender: FDA-Public Use
  Company Number: US-1183192

PATIENT
  Sex: Female

DRUGS (4)
  1. AZOPT [Suspect]
     Indication: INTRAOCULAR PRESSURE INCREASED
     Dosage: (OPHTHALMIC)
     Route: 047
     Dates: start: 20100801
  2. XALATAN [Concomitant]
  3. CRESTOR [Concomitant]
  4. PLAVIX [Concomitant]

REACTIONS (1)
  - PALPITATIONS [None]
